FAERS Safety Report 17711689 (Version 16)
Quarter: 2020Q4

REPORT INFORMATION
  Report Type: Spontaneous
  Country: CA (occurrence: CA)
  Receive Date: 20200427
  Receipt Date: 20201019
  Transmission Date: 20210113
  Serious: Yes (Hospitalization, Other)
  Sender: FDA-Public Use
  Company Number: CA-PFIZER INC-2020154923

PATIENT
  Age: 57 Year
  Sex: Male
  Weight: 72.9 kg

DRUGS (11)
  1. ZIRABEV [Suspect]
     Active Substance: BEVACIZUMAB-BVZR
     Dosage: 1100MG EVERY 3 WEEKS
     Route: 042
     Dates: start: 20200901
  2. ZIRABEV [Suspect]
     Active Substance: BEVACIZUMAB-BVZR
     Dosage: 1100MG EVERY 3 WEEKS
     Route: 042
     Dates: start: 20200811
  3. ZIRABEV [Suspect]
     Active Substance: BEVACIZUMAB-BVZR
     Dosage: 1100MG EVERY 3 WEEKS
     Route: 042
     Dates: start: 20200811
  4. ZIRABEV [Suspect]
     Active Substance: BEVACIZUMAB-BVZR
     Dosage: 1100MG EVERY 3 WEEKS
     Route: 042
  5. ZIRABEV [Suspect]
     Active Substance: BEVACIZUMAB-BVZR
     Dosage: 1100MG EVERY 3 WEEKS
     Route: 042
     Dates: start: 20201013
  6. ZIRABEV [Suspect]
     Active Substance: BEVACIZUMAB-BVZR
     Dosage: 1100MG EVERY 3 WEEKS
     Route: 042
     Dates: start: 20201013
  7. ZIRABEV [Suspect]
     Active Substance: BEVACIZUMAB-BVZR
     Indication: GLIOBLASTOMA
     Dosage: 15 MG/KG, EVERY 3 WEEKS
     Route: 042
     Dates: start: 20200402
  8. ZIRABEV [Suspect]
     Active Substance: BEVACIZUMAB-BVZR
     Dosage: 1100MG EVERY 3 WEEKS
     Route: 042
     Dates: start: 20200520
  9. ZIRABEV [Suspect]
     Active Substance: BEVACIZUMAB-BVZR
     Dosage: 1100MG EVERY 3 WEEKS
     Route: 042
     Dates: start: 20200901
  10. ZIRABEV [Suspect]
     Active Substance: BEVACIZUMAB-BVZR
     Dosage: 1100MG EVERY 3 WEEKS
     Route: 042
     Dates: start: 20200520
  11. ZIRABEV [Suspect]
     Active Substance: BEVACIZUMAB-BVZR
     Dosage: 1100MG EVERY 3 WEEKS
     Route: 042

REACTIONS (11)
  - Diarrhoea [Unknown]
  - Blood glucose increased [Unknown]
  - Therapeutic response unexpected [Unknown]
  - Urine ketone body present [Unknown]
  - COVID-19 [Unknown]
  - Thrombosis [Recovered/Resolved]
  - Protein urine present [Unknown]
  - Off label use [Unknown]
  - Product use issue [Unknown]
  - Platelet count decreased [Unknown]
  - Red blood cell count decreased [Unknown]

NARRATIVE: CASE EVENT DATE: 202004
